FAERS Safety Report 21785075 (Version 1)
Quarter: 2022Q4

REPORT INFORMATION
  Report Type: Spontaneous
  Country: FR (occurrence: FR)
  Receive Date: 20221227
  Receipt Date: 20221227
  Transmission Date: 20230113
  Serious: Yes (Life-Threatening, Other)
  Sender: FDA-Public Use
  Company Number: None

PATIENT
  Age: 37 Year
  Sex: Female
  Weight: 77 kg

DRUGS (10)
  1. METHYLPREDNISOLONE [Suspect]
     Active Substance: METHYLPREDNISOLONE
     Indication: Premedication
     Dosage: UNK
  2. MESNA [Suspect]
     Active Substance: MESNA
     Indication: Chemotherapy
     Dosage: UNK
  3. CISPLATIN [Suspect]
     Active Substance: CISPLATIN
     Indication: Osteosarcoma
     Dosage: UNK
     Route: 042
     Dates: start: 20121129, end: 20130521
  4. IFOSFAMIDE [Suspect]
     Active Substance: IFOSFAMIDE
     Indication: Osteosarcoma
     Dosage: UNK
     Route: 042
     Dates: start: 20121129, end: 20130522
  5. SODIUM BICARBONATE [Suspect]
     Active Substance: SODIUM BICARBONATE
     Indication: Chemotherapy
     Dosage: UNK
     Route: 002
  6. FILGRASTIM [Suspect]
     Active Substance: FILGRASTIM
     Indication: Neutropenia
     Dosage: UNK
     Dates: start: 20130523
  7. PRAZEPAM [Suspect]
     Active Substance: PRAZEPAM
     Indication: Premedication
     Dosage: UNK
     Route: 048
  8. ONDANSETRON [Suspect]
     Active Substance: ONDANSETRON
     Indication: Premedication
     Dosage: UNK
     Dates: end: 20130524
  9. PREDNISOLONE SODIUM METAZOATE [Suspect]
     Active Substance: PREDNISOLONE SODIUM METAZOATE
     Indication: Premedication
     Dosage: 60 MG
     Route: 048
     Dates: end: 20130525
  10. DOXORUBICIN [Suspect]
     Active Substance: DOXORUBICIN
     Indication: Osteosarcoma
     Dosage: UNK
     Route: 042
     Dates: start: 20121129, end: 20130521

REACTIONS (8)
  - Thrombocytopenia [Unknown]
  - Electrocardiogram ST segment depression [Unknown]
  - Neutropenia [Unknown]
  - Leukopenia [Unknown]
  - Hypokalaemia [Unknown]
  - Pyrexia [Unknown]
  - Anaemia [Unknown]
  - Diarrhoea [Unknown]

NARRATIVE: CASE EVENT DATE: 20130528
